FAERS Safety Report 19228225 (Version 1)
Quarter: 2021Q2

REPORT INFORMATION
  Report Type: Spontaneous
  Country: DE (occurrence: DE)
  Receive Date: 20210507
  Receipt Date: 20210507
  Transmission Date: 20210717
  Serious: Yes (Other)
  Sender: FDA-Public Use
  Company Number: DE-TEVA-2021-DE-1873712

PATIENT
  Age: 64 Year
  Sex: Female
  Weight: 43 kg

DRUGS (2)
  1. RISEDRONAT BLUEFISH 35 MG FILMTABLETTEN EINMAL W CHENTLICH [Suspect]
     Active Substance: RISEDRONATE SODIUM
     Indication: OSTEOPOROSIS
     Dosage: 1X WEEKLY (RISEDRONATE):UNIT DOSE:35MILLIGRAM
     Route: 048
     Dates: start: 20160114, end: 20160331
  2. RALOXIFEN TEVA 60 MG FILMTABLETTEN [Suspect]
     Active Substance: RALOXIFENE HYDROCHLORIDE
     Indication: OSTEOPOROSIS
     Dosage: 60 MILLIGRAM DAILY; 1X DAILY
     Route: 048
     Dates: start: 20160114, end: 20160331

REACTIONS (8)
  - Headache [Not Recovered/Not Resolved]
  - Pallor [Recovered/Resolved]
  - Cardiac discomfort [Recovered/Resolved]
  - Reaction to excipient [Unknown]
  - Cyanosis [Not Recovered/Not Resolved]
  - Asthma [Recovered/Resolved]
  - Confusional state [Not Recovered/Not Resolved]
  - Pain in jaw [Recovered/Resolved]

NARRATIVE: CASE EVENT DATE: 20160114
